FAERS Safety Report 7769360-8 (Version None)
Quarter: 2011Q3

REPORT INFORMATION
  Report Type: 
  Country: None (occurrence: None)
  Receive Date: 20110922
  Receipt Date: 20100827
  Transmission Date: 20111222
  Serious: No
  Sender: FDA-Public Use
  Company Number: US-ASTRAZENECA-2007UW27714

PATIENT
  Age: 39 Year
  Sex: Female
  Weight: 86.2 kg

DRUGS (8)
  1. SEROQUEL [Suspect]
     Dosage: 25 MG TO 400 MG
     Route: 048
     Dates: start: 20100501, end: 20100601
  2. SEROQUEL [Suspect]
     Indication: ANXIETY
     Dosage: 25 MG TO 400 MG
     Route: 048
     Dates: start: 20020705, end: 20061130
  3. SEROQUEL [Suspect]
     Indication: SLEEP DISORDER
     Dosage: 25 MG TO 400 MG
     Route: 048
     Dates: start: 20020705, end: 20061130
  4. SEROQUEL [Suspect]
     Dosage: 25 MG TO 400 MG
     Route: 048
     Dates: start: 20100501, end: 20100601
  5. SEROQUEL [Suspect]
     Dosage: 25 MG TO 400 MG
     Route: 048
     Dates: start: 20100501, end: 20100601
  6. SEROQUEL [Suspect]
     Indication: DEPRESSION
     Dosage: 25 MG TO 400 MG
     Route: 048
     Dates: start: 20020705, end: 20061130
  7. RISPERDAL [Concomitant]
     Indication: DEPRESSION
     Dates: start: 20020101
  8. ZYPREXA [Concomitant]
     Indication: DEPRESSION
     Dates: start: 20030101, end: 20040101

REACTIONS (7)
  - BLOOD CHOLESTEROL INCREASED [None]
  - OBESITY [None]
  - DIABETIC COMPLICATION [None]
  - HYPERLIPIDAEMIA [None]
  - DIABETES MELLITUS [None]
  - DRUG INEFFECTIVE [None]
  - BLOOD GLUCOSE ABNORMAL [None]
